FAERS Safety Report 17151257 (Version 3)
Quarter: 2020Q1

REPORT INFORMATION
  Report Type: Spontaneous
  Country: US (occurrence: US)
  Receive Date: 20191213
  Receipt Date: 20200206
  Transmission Date: 20200409
  Serious: No
  Sender: FDA-Public Use
  Company Number: US-PFIZER INC-2019535559

PATIENT
  Age: 74 Year
  Sex: Female
  Weight: 60.32 kg

DRUGS (1)
  1. IBRANCE [Suspect]
     Active Substance: PALBOCICLIB
     Indication: BREAST CANCER METASTATIC
     Dosage: 75 MG, CYCLIC (D1-21 Q28D)
     Route: 048
     Dates: start: 2015

REACTIONS (9)
  - Dyspepsia [Unknown]
  - White blood cell count abnormal [Unknown]
  - Alopecia [Unknown]
  - Cough [Unknown]
  - Pain [Unknown]
  - Red blood cell abnormality [Unknown]
  - Tremor [Unknown]
  - Nausea [Unknown]
  - Fatigue [Unknown]
